FAERS Safety Report 6838934-0 (Version None)
Quarter: 2010Q3

REPORT INFORMATION
  Report Type: 
  Country: None (occurrence: None)
  Receive Date: 20100713
  Receipt Date: 20070921
  Transmission Date: 20110219
  Serious: No
  Sender: FDA-Public Use
  Company Number: US-PFIZER INC-2007038431

PATIENT
  Age: 71 Year
  Sex: Male

DRUGS (15)
  1. CHANTIX [Suspect]
     Indication: SMOKING CESSATION THERAPY
     Dates: end: 20070501
  2. GLUCOPHAGE [Concomitant]
  3. DETROL [Concomitant]
  4. DYAZIDE [Concomitant]
  5. TENORMIN [Concomitant]
  6. LIPITOR [Concomitant]
  7. AGGRENOX [Concomitant]
  8. AVANDIA [Concomitant]
  9. NEXIUM [Concomitant]
  10. RESTORIL [Concomitant]
  11. LEXAPRO [Concomitant]
  12. COMBIVENT [Concomitant]
  13. GLUCOTROL [Concomitant]
  14. VICODIN [Concomitant]
  15. LIMBITROL [Concomitant]

REACTIONS (2)
  - NAUSEA [None]
  - NERVOUSNESS [None]
